FAERS Safety Report 14090656 (Version 1)
Quarter: 2017Q4

REPORT INFORMATION
  Report Type: Spontaneous
  Country: US (occurrence: US)
  Receive Date: 20171015
  Receipt Date: 20171015
  Transmission Date: 20180321
  Serious: No
  Sender: FDA-Public Use
  Company Number: US-SA-2017SA137378

PATIENT
  Age: 56 Year
  Sex: Female

DRUGS (1)
  1. AUBAGIO [Suspect]
     Active Substance: TERIFLUNOMIDE
     Indication: MULTIPLE SCLEROSIS
     Route: 048
     Dates: start: 20160322

REACTIONS (5)
  - Rash [Unknown]
  - Erythema [Unknown]
  - Dry skin [Unknown]
  - Skin warm [Unknown]
  - Pruritus [Unknown]

NARRATIVE: CASE EVENT DATE: 20170501
